FAERS Safety Report 4521566-7 (Version None)
Quarter: 2004Q4

REPORT INFORMATION
  Report Type: 
  Country: None (occurrence: None)
  Receive Date: 20041208
  Receipt Date: 20041208
  Transmission Date: 20050328
  Serious: Yes (Other)
  Sender: FDA-Public Use
  Company Number: None

PATIENT
  Age: 47 Year
  Sex: Male
  Weight: 77.1115 kg

DRUGS (2)
  1. LIBRAX [Suspect]
  2. LIBRAX [Suspect]

REACTIONS (1)
  - MEDICATION ERROR [None]
